FAERS Safety Report 14744606 (Version 2)
Quarter: 2018Q2

REPORT INFORMATION
  Report Type: Report from Study
  Country: None (occurrence: NL)
  Receive Date: 20180411
  Receipt Date: 20180421
  Transmission Date: 20180711
  Serious: Yes (Other)
  Sender: FDA-Public Use
  Company Number: NL-ABBVIE-18K-114-2297273-00

PATIENT
  Age: 68 Year
  Sex: Male

DRUGS (1)
  1. DUODOPA [Suspect]
     Active Substance: CARBIDOPA\LEVODOPA
     Indication: PARKINSON^S DISEASE
     Dosage: MD 14.0?CD 4.9?ED 4.0
     Route: 050
     Dates: start: 20180206

REACTIONS (16)
  - Fall [Recovered/Resolved]
  - Daydreaming [Recovered/Resolved]
  - Mobility decreased [Recovered/Resolved]
  - Stoma site reaction [Not Recovered/Not Resolved]
  - Feeling abnormal [Not Recovered/Not Resolved]
  - Abdominal distension [Not Recovered/Not Resolved]
  - Stoma site discharge [Recovered/Resolved]
  - Staring [Recovered/Resolved]
  - Stoma site pain [Recovered/Resolved]
  - Parkinson^s disease [Recovered/Resolved]
  - Syncope [Recovered/Resolved]
  - Abdominal discomfort [Recovered/Resolved]
  - Stoma site infection [Recovered/Resolved]
  - Stoma site irritation [Recovered/Resolved]
  - Gait disturbance [Not Recovered/Not Resolved]
  - Stoma site erythema [Recovered/Resolved]

NARRATIVE: CASE EVENT DATE: 2018
